FAERS Safety Report 6449025-5 (Version None)
Quarter: 2009Q4

REPORT INFORMATION
  Report Type: 
  Country: None (occurrence: None)
  Receive Date: 20091120
  Receipt Date: 20091110
  Transmission Date: 20100525
  Serious: Yes (Life-Threatening, Hospitalization)
  Sender: FDA-Public Use
  Company Number: B0603112A

PATIENT
  Sex: Female

DRUGS (11)
  1. FORTUM [Suspect]
     Indication: ANTIBIOTIC THERAPY
     Route: 065
     Dates: start: 20091012, end: 20091019
  2. HEPARIN SODIUM [Suspect]
     Indication: DEEP VEIN THROMBOSIS
     Route: 065
     Dates: start: 20091012, end: 20091022
  3. BACTRIM [Suspect]
     Indication: ANTIBIOTIC THERAPY
     Route: 065
     Dates: start: 20091012, end: 20091019
  4. TAVANIC [Suspect]
     Indication: ANTIBIOTIC THERAPY
     Route: 065
     Dates: start: 20091012, end: 20091017
  5. ZYVOXID [Suspect]
     Indication: ANTIBIOTIC THERAPY
     Route: 065
     Dates: start: 20091012, end: 20091017
  6. PREVISCAN [Concomitant]
     Indication: DRUG USE FOR UNKNOWN INDICATION
     Route: 065
  7. SECTRAL [Concomitant]
     Indication: DRUG USE FOR UNKNOWN INDICATION
     Route: 065
  8. NOVONORM [Concomitant]
     Indication: DRUG USE FOR UNKNOWN INDICATION
     Route: 065
  9. HEMIGOXINE [Concomitant]
     Indication: DRUG USE FOR UNKNOWN INDICATION
     Route: 065
  10. ACTOS [Concomitant]
     Indication: DRUG USE FOR UNKNOWN INDICATION
     Route: 065
  11. PROTON PUMP INHIBITOR [Concomitant]
     Indication: PEPTIC ULCER
     Route: 065
     Dates: start: 20091001

REACTIONS (5)
  - ANAEMIA [None]
  - HEPARIN-INDUCED THROMBOCYTOPENIA [None]
  - MELAENA [None]
  - PEPTIC ULCER [None]
  - THROMBOCYTOPENIA [None]
